FAERS Safety Report 6440184-7 (Version None)
Quarter: 2009Q4

REPORT INFORMATION
  Report Type: 
  Country: None (occurrence: None)
  Receive Date: 20091113
  Receipt Date: 20090720
  Transmission Date: 20100525
  Serious: No
  Sender: FDA-Public Use
  Company Number: A0797662A

PATIENT
  Age: 62 Year
  Sex: Male

DRUGS (2)
  1. COREG [Suspect]
     Indication: LEFT VENTRICULAR DYSFUNCTION
     Dosage: 25MG SINGLE DOSE
     Route: 048
     Dates: start: 20090701
  2. MULTIPLE MEDICATIONS [Concomitant]

REACTIONS (3)
  - DIZZINESS [None]
  - LETHARGY [None]
  - PERIPHERAL COLDNESS [None]
